FAERS Safety Report 6118713-2 (Version None)
Quarter: 2009Q1

REPORT INFORMATION
  Report Type: 
  Country: None (occurrence: None)
  Receive Date: 20090314
  Receipt Date: 20090226
  Transmission Date: 20090719
  Serious: No
  Sender: FDA-Public Use
  Company Number: US-ABBOTT-09P-163-0559562-00

PATIENT
  Sex: Female
  Weight: 59.02 kg

DRUGS (4)
  1. HUMIRA [Suspect]
     Indication: COLITIS ULCERATIVE
     Route: 058
     Dates: start: 20080601
  2. HUMIRA [Suspect]
     Indication: RHEUMATOID ARTHRITIS
  3. LIALDA [Concomitant]
     Indication: COLITIS ULCERATIVE
     Dates: start: 20090101
  4. NIRAVAM [Concomitant]
     Indication: PANIC ATTACK
     Route: 048

REACTIONS (1)
  - INJECTION SITE PAIN [None]
